FAERS Safety Report 20816262 (Version 1)
Quarter: 2022Q2

REPORT INFORMATION
  Report Type: Spontaneous
  Country: None (occurrence: IE)
  Receive Date: 20220511
  Receipt Date: 20220511
  Transmission Date: 20220721
  Serious: Yes (Other)
  Sender: FDA-Public Use
  Company Number: IE-Canton Laboratories, LLC-2128704

PATIENT
  Age: 22 Year
  Sex: Female

DRUGS (2)
  1. NAPROSYN [Suspect]
     Active Substance: NAPROXEN
     Indication: Viral upper respiratory tract infection
  2. AZITHROMYCIN [Suspect]
     Active Substance: AZITHROMYCIN

REACTIONS (5)
  - Blindness unilateral [Not Recovered/Not Resolved]
  - Vaginal stricture [Unknown]
  - Stevens-Johnson syndrome [Recovered/Resolved with Sequelae]
  - Corneal perforation [Not Recovered/Not Resolved]
  - Visual impairment [Not Recovered/Not Resolved]
